FAERS Safety Report 4466798-1 (Version None)
Quarter: 2004Q3

REPORT INFORMATION
  Report Type: 
  Country: None (occurrence: None)
  Receive Date: 20040930
  Receipt Date: 20040916
  Transmission Date: 20050211
  Serious: Yes (Disabling)
  Sender: FDA-Public Use
  Company Number: CERZ-10669

PATIENT
  Age: 59 Year
  Sex: Female
  Weight: 67.3 kg

DRUGS (2)
  1. CEREZYME [Suspect]
     Indication: GAUCHER'S DISEASE
     Dosage: 2000 UNIS Q2WKS; IV
     Route: 042
  2. MIRAPEX [Suspect]
     Indication: PARKINSON'S DISEASE
     Dosage: 1 MG TID
     Dates: start: 20040701

REACTIONS (4)
  - DIFFICULTY IN WALKING [None]
  - FEELING ABNORMAL [None]
  - NAUSEA [None]
  - PARKINSON'S DISEASE [None]
